FAERS Safety Report 5743414-X (Version None)
Quarter: 2008Q2

REPORT INFORMATION
  Report Type: 
  Country: None (occurrence: None)
  Receive Date: 20080519
  Receipt Date: 20080519
  Transmission Date: 20081010
  Serious: Yes (Other)
  Sender: FDA-Public Use
  Company Number: None

PATIENT
  Age: 45 Year
  Sex: Female
  Weight: 62.5964 kg

DRUGS (2)
  1. TOPAMAX [Suspect]
     Indication: ANXIETY
     Dosage: 100MG QHS PO
     Route: 048
     Dates: start: 20040505, end: 20080314
  2. TOPAMAX [Suspect]
     Indication: PAIN
     Dosage: 100MG QHS PO
     Route: 048
     Dates: start: 20040505, end: 20080314

REACTIONS (1)
  - DELUSION [None]
